FAERS Safety Report 11190944 (Version 4)
Quarter: 2015Q4

REPORT INFORMATION
  Report Type: Spontaneous
  Country: AT (occurrence: AT)
  Receive Date: 20150615
  Receipt Date: 20151223
  Transmission Date: 20160304
  Serious: Yes (Hospitalization, Other)
  Sender: FDA-Public Use
  Company Number: AT-ASTRAZENECA-2015SE57434

PATIENT
  Age: 17 Year
  Sex: Female

DRUGS (18)
  1. SEROQUEL [Suspect]
     Active Substance: QUETIAPINE FUMARATE
     Route: 048
     Dates: start: 20150217, end: 20150302
  2. RISPERDAL [Suspect]
     Active Substance: RISPERIDONE
     Route: 048
     Dates: start: 20150217, end: 20150302
  3. LOVENOX [Suspect]
     Active Substance: ENOXAPARIN SODIUM
     Route: 065
  4. ABILIFY [Concomitant]
     Active Substance: ARIPIPRAZOLE
  5. GLADEM [Concomitant]
     Active Substance: SERTRALINE HYDROCHLORIDE
  6. GEWACALM [Concomitant]
  7. TRUXAL [Concomitant]
     Active Substance: CHLORPROTHIXENE
     Dosage: ON DEMAND
  8. INDERAL [Concomitant]
     Active Substance: PROPRANOLOL HYDROCHLORIDE
     Route: 048
     Dates: start: 20150218
  9. AKINETON [Concomitant]
     Active Substance: BIPERIDEN HYDROCHLORIDE
  10. TEMESTA [Suspect]
     Active Substance: LORAZEPAM
     Dosage: 2.5 MG, HALF FOUR TIMES A DAY
     Route: 048
  11. HALDOL [Suspect]
     Active Substance: HALOPERIDOL
     Route: 048
     Dates: end: 20150217
  12. DEPAKINE CR [Concomitant]
     Active Substance: VALPROATE SODIUM
  13. CONCOR [Concomitant]
     Active Substance: BISOPROLOL FUMARATE
  14. ZYPREXA [Suspect]
     Active Substance: OLANZAPINE
     Route: 048
     Dates: start: 20150209, end: 20150217
  15. LOVENOX [Suspect]
     Active Substance: ENOXAPARIN SODIUM
     Route: 065
  16. SEROQUEL [Suspect]
     Active Substance: QUETIAPINE FUMARATE
     Route: 048
  17. TEMESTA [Suspect]
     Active Substance: LORAZEPAM
     Route: 048
     Dates: start: 20150217, end: 20150302
  18. TRUXAL [Concomitant]
     Active Substance: CHLORPROTHIXENE
     Dosage: 50-100 MG, ON DEMAND

REACTIONS (2)
  - Embolism [Recovering/Resolving]
  - Intentional product misuse [Unknown]

NARRATIVE: CASE EVENT DATE: 20150223
